FAERS Safety Report 9971023 (Version 2)
Quarter: 2014Q1

REPORT INFORMATION
  Report Type: Spontaneous
  Country: US (occurrence: US)
  Receive Date: 20140306
  Receipt Date: 20140306
  Transmission Date: 20141002
  Serious: Yes (Disabling)
  Sender: FDA-Public Use
  Company Number: US-GE HEALTHCARE MEDICAL DIAGNOSTICS-OSCN-PR-0711S-0449

PATIENT
  Age: 53 Year
  Sex: Male

DRUGS (19)
  1. OMNISCAN [Suspect]
     Indication: PRODUCT USED FOR UNKNOWN INDICATION
     Route: 042
     Dates: start: 20041106, end: 20041106
  2. OMNISCAN [Suspect]
     Indication: PRODUCT USED FOR UNKNOWN INDICATION
     Route: 050
     Dates: start: 20051018, end: 20051018
  3. OMNISCAN [Suspect]
     Indication: PRODUCT USED FOR UNKNOWN INDICATION
     Route: 042
     Dates: start: 20051018, end: 20051018
  4. OMNISCAN [Suspect]
     Indication: PRODUCT USED FOR UNKNOWN INDICATION
     Route: 042
     Dates: start: 20051021, end: 20051021
  5. OMNISCAN [Suspect]
     Indication: PRODUCT USED FOR UNKNOWN INDICATION
     Route: 042
     Dates: start: 20051101, end: 20051101
  6. MAGNEVIST [Suspect]
     Indication: PRODUCT USED FOR UNKNOWN INDICATION
     Dates: start: 20051019, end: 20051019
  7. EPOGEN [Concomitant]
     Dates: start: 1996
  8. AMIODARONE [Concomitant]
     Dates: start: 2005
  9. TRAMADOL [Concomitant]
     Dates: start: 2007
  10. CALCITRIOL [Concomitant]
  11. MIDODRINE [Concomitant]
  12. NEXIUM [Concomitant]
  13. DIATX [Concomitant]
  14. GABAPENTIN [Concomitant]
  15. LEVOTHYROXINE [Concomitant]
  16. RENAGEL [Concomitant]
  17. GLUCOSAMINE [Concomitant]
  18. IMODIUM [Concomitant]
  19. PHOSLO [Concomitant]

REACTIONS (1)
  - Nephrogenic systemic fibrosis [Not Recovered/Not Resolved]
